FAERS Safety Report 13248102 (Version 2)
Quarter: 2017Q1

REPORT INFORMATION
  Report Type: Spontaneous
  Country: FR (occurrence: FR)
  Receive Date: 20170217
  Receipt Date: 20170224
  Transmission Date: 20170428
  Serious: Yes (Hospitalization)
  Sender: FDA-Public Use
  Company Number: FR-009507513-1702FRA005693

PATIENT
  Age: 75 Year
  Sex: Male

DRUGS (10)
  1. ESOMEPRAZOLE MAGNESIUM. [Concomitant]
     Active Substance: ESOMEPRAZOLE MAGNESIUM
     Dosage: 0-0-1 (STRENGTH: 20 MG)
     Route: 048
  2. CUBICIN [Suspect]
     Active Substance: DAPTOMYCIN
     Dosage: 900 MG, Q24H
     Route: 042
     Dates: start: 20161126, end: 20161127
  3. COUMADIN [Concomitant]
     Active Substance: WARFARIN SODIUM
     Dosage: 0-0-1 (STRENGTH 4 MG)
  4. SIMVASTATIN. [Concomitant]
     Active Substance: SIMVASTATIN
     Dosage: 0-0-1 (STRENGTH 20 MG)
     Route: 048
  5. MEROPENEM. [Concomitant]
     Active Substance: MEROPENEM
     Indication: ENTEROCOCCAL INFECTION
     Dosage: UNK
     Route: 042
     Dates: start: 20160926, end: 20161128
  6. CUBICIN [Suspect]
     Active Substance: DAPTOMYCIN
     Indication: ENTEROCOCCAL INFECTION
     Dosage: 900 MG, Q24H
     Route: 042
     Dates: start: 20161129, end: 20161230
  7. VANCOMYCIN [Concomitant]
     Active Substance: VANCOMYCIN
     Indication: ENTEROCOCCAL INFECTION
     Dosage: UNK
     Route: 042
     Dates: start: 20161117, end: 20161123
  8. INSULIN GLARGINE [Concomitant]
     Active Substance: INSULIN GLARGINE
     Dosage: 0-0-22 IU
  9. FUROSEMIDE. [Concomitant]
     Active Substance: FUROSEMIDE
     Dosage: 0-1-0 (STRENGTH 40 MG)
     Route: 048
  10. RAMIPRIL. [Concomitant]
     Active Substance: RAMIPRIL
     Dosage: 1-0-1 (STRENGTH 2.5 MG)

REACTIONS (3)
  - Eosinophilia [Recovered/Resolved]
  - Interstitial lung disease [Recovering/Resolving]
  - Alveolitis [Recovering/Resolving]

NARRATIVE: CASE EVENT DATE: 20161229
